FAERS Safety Report 24024802 (Version 1)
Quarter: 2024Q2

REPORT INFORMATION
  Report Type: Report from Study
  Country: US (occurrence: US)
  Receive Date: 20240628
  Receipt Date: 20240628
  Transmission Date: 20240716
  Serious: No
  Sender: FDA-Public Use
  Company Number: US-ROCHE-3480770

PATIENT
  Sex: Female

DRUGS (2)
  1. PHESGO [Suspect]
     Active Substance: HYALURONIDASE-ZZXF\PERTUZUMAB\TRASTUZUMAB
     Indication: Breast cancer female
     Dosage: 1800MG LOADING DOSE, 1200MG MAINTENENCE DOSE EVERY 21 DAYS  DATE OF TREATMENT: 26/OCT/2023, 16/NOV/2
     Route: 058
     Dates: start: 20230208
  2. PHESGO [Suspect]
     Active Substance: HYALURONIDASE-ZZXF\PERTUZUMAB\TRASTUZUMAB
     Indication: Oestrogen receptor assay negative

REACTIONS (3)
  - Haematocrit decreased [Unknown]
  - Haemoglobin decreased [Unknown]
  - Off label use [Unknown]

NARRATIVE: CASE EVENT DATE: 20230208
